FAERS Safety Report 20973935 (Version 1)
Quarter: 2022Q2

REPORT INFORMATION
  Report Type: Spontaneous
  Country: US (occurrence: US)
  Receive Date: 20220617
  Receipt Date: 20220617
  Transmission Date: 20220720
  Serious: Yes (Other)
  Sender: FDA-Public Use
  Company Number: US-CELGENE-USA-20220106563

PATIENT
  Age: 78 Year
  Sex: Female
  Weight: 73.48 kg

DRUGS (1)
  1. REVLIMID [Suspect]
     Active Substance: LENALIDOMIDE
     Indication: Plasma cell myeloma
     Dosage: DAILY FOR 21 DAYS ON, 7 DAY OFF.
     Route: 048
     Dates: start: 201909

REACTIONS (3)
  - Fall [Unknown]
  - White blood cell count decreased [Unknown]
  - Hip fracture [Unknown]
